FAERS Safety Report 8938962 (Version 2)
Quarter: 2012Q4

REPORT INFORMATION
  Report Type: 
  Country: US (occurrence: US)
  Receive Date: 20121121
  Receipt Date: 20121121
  Transmission Date: 20130627
  Serious: Yes (Death, Other)
  Sender: FDA-Public Use
  Company Number: US-ASTELLAS-1108674

PATIENT
  Sex: Female
  Weight: 44.6 kg

DRUGS (11)
  1. TARCEVA [Suspect]
     Indication: MALIGNANT RESPIRATORY TRACT NEOPLASM
     Route: 048
  2. ETOPOSIDE [Concomitant]
  3. PLAVIX [Concomitant]
     Route: 048
  4. ULTRAM [Concomitant]
     Dosage: 1 PO Q4 to 6H
     Route: 048
  5. ASPIRINE [Concomitant]
     Route: 065
  6. ATIVAN [Concomitant]
     Indication: NAUSEA
     Dosage: as needed
     Route: 065
  7. DOCUSATE SODIUM [Concomitant]
     Dosage: as needed
     Route: 048
  8. COMPAZINE [Concomitant]
     Indication: NAUSEA
     Dosage: as needed
     Route: 048
  9. ONDANSETRON [Concomitant]
     Route: 048
  10. MORPHINE [Concomitant]
  11. LOVENOX [Concomitant]
     Route: 058

REACTIONS (2)
  - Death [Fatal]
  - Disease progression [Unknown]
